FAERS Safety Report 24386763 (Version 1)
Quarter: 2024Q4

REPORT INFORMATION
  Report Type: Spontaneous
  Country: US (occurrence: US)
  Receive Date: 20241002
  Receipt Date: 20241002
  Transmission Date: 20250114
  Serious: Yes (Hospitalization, Other)
  Sender: GLENMARK
  Company Number: US-GLENMARK PHARMACEUTICALS-2024GMK093175

PATIENT

DRUGS (35)
  1. LITHIUM [Suspect]
     Active Substance: LITHIUM
     Indication: Product used for unknown indication
     Dosage: 450 MILLIGRAM, BID
     Route: 048
  2. LITHIUM [Suspect]
     Active Substance: LITHIUM
     Dosage: 300 MILLIGRAM, HS (DOSE DECREASED)
     Route: 048
     Dates: start: 20240613, end: 20240616
  3. LITHIUM [Suspect]
     Active Substance: LITHIUM
     Dosage: 450 MILLIGRAM, BID (RETURENED ON 450 MG BID)
     Route: 048
     Dates: start: 20240617, end: 20240626
  4. LITHIUM [Suspect]
     Active Substance: LITHIUM
     Dosage: 300 MILLIGRAM, BID (DOSE DECREASED)
     Route: 048
     Dates: start: 20240627
  5. LYBALVI [Suspect]
     Active Substance: OLANZAPINE\SAMIDORPHAN L-MALATE
     Indication: Schizophrenia
     Dosage: 10/10 MG, QD (COATED BILAYER TABLET)
     Route: 048
     Dates: start: 20240321
  6. LYBALVI [Suspect]
     Active Substance: OLANZAPINE\SAMIDORPHAN L-MALATE
     Indication: Schizoaffective disorder bipolar type
     Dosage: 10/10 MG, QD (COATED BILAYER TABLET)
     Route: 048
     Dates: start: 20240429
  7. GABAPENTIN [Concomitant]
     Active Substance: GABAPENTIN
     Indication: Diabetic neuropathy
     Dosage: 300 MILLIGRAM, BID
     Route: 065
  8. SERTRALINE [Concomitant]
     Active Substance: SERTRALINE HYDROCHLORIDE
     Indication: Anxiety
     Dosage: 200 MILLIGRAM, QD
     Route: 065
  9. OLANZAPINE [Concomitant]
     Active Substance: OLANZAPINE
     Indication: Product used for unknown indication
     Dosage: UNK
     Route: 065
     Dates: end: 20240429
  10. ACETAMINOPHEN [Concomitant]
     Active Substance: ACETAMINOPHEN
     Indication: Product used for unknown indication
     Dosage: 2 DOSAGE FORM, BID (2 TABLETS BID)
     Route: 048
     Dates: start: 20240820
  11. ASPIRIN [Concomitant]
     Active Substance: ASPIRIN
     Indication: Product used for unknown indication
     Dosage: 81 MILLIGRAM, QD
     Route: 048
     Dates: start: 20240209
  12. ATENOLOL [Concomitant]
     Active Substance: ATENOLOL
     Indication: Blood pressure abnormal
     Dosage: 50 MILLIGRAM, QD
     Route: 048
     Dates: start: 20240716
  13. ATORVASTATIN [Concomitant]
     Active Substance: ATORVASTATIN
     Indication: Product used for unknown indication
     Dosage: 20 MILLIGRAM, QD
     Route: 048
     Dates: start: 20240110
  14. BENZTROPINE [Concomitant]
     Active Substance: BENZTROPINE
     Indication: Extrapyramidal disorder
     Dosage: UNK
     Route: 048
  15. BENZTROPINE [Concomitant]
     Active Substance: BENZTROPINE
     Dosage: INCREASE DOSE TO 0.5 MG (1 TABLET) AT AM AND 1 MG (2 TABLETS) AT HS, BID
     Route: 048
     Dates: start: 20240710
  16. BUSPIRONE [Concomitant]
     Active Substance: BUSPIRONE HYDROCHLORIDE
     Indication: Anxiety
     Dosage: 20 MILLIGRAM, BID (INCREASE DOSE TO 20 MG PO BID)
     Route: 048
     Dates: start: 20240710
  17. VITAMIN D3 [Concomitant]
     Active Substance: CHOLECALCIFEROL
     Indication: Product used for unknown indication
     Dosage: 20 MICROGRAM, QD (20 MCG ORALLY DAILY FOR)
     Route: 048
     Dates: start: 20240516
  18. PREVALITE [Concomitant]
     Active Substance: CHOLESTYRAMINE
     Indication: Blood cholesterol abnormal
     Dosage: 4 GRAM, QD; MIX 1 PACKET IN 3 OUNCE OF WATER OR JUICE AND DRINK DAILY (FORMULATION: ORAL POWDER FOR
     Route: 048
     Dates: start: 20230925
  19. DICLOFENAC SODIUM [Concomitant]
     Active Substance: DICLOFENAC SODIUM
     Indication: Pain
     Dosage: 2 GRAM, QID (2 GRAMS TOPICALLY 4 TIMES A DAY FOR PAIN)
     Route: 061
     Dates: start: 20230816
  20. DOCUSATE SODIUM [Concomitant]
     Active Substance: DOCUSATE SODIUM
     Indication: Product used for unknown indication
     Dosage: 100 MILLIGRAM, BID (100 MG ORALLY TWICE DAILY FOR)
     Route: 065
     Dates: start: 20240110
  21. FINASTERIDE [Concomitant]
     Active Substance: FINASTERIDE
     Indication: Product used for unknown indication
     Dosage: 5 MILLIGRAM, QD (5 MILLIGRAM ORALLY DAILY)
     Route: 048
     Dates: start: 20240716
  22. GABAPENTIN [Concomitant]
     Active Substance: GABAPENTIN
     Indication: Neuropathy peripheral
     Dosage: 300 MILLIGRAM, BID (300 MILLIGRAM ORALLY TWICE A DAY FOR NEUROPATHY)
     Route: 048
     Dates: start: 20240710
  23. GLUCAGON [Concomitant]
     Active Substance: GLUCAGON
     Indication: Product used for unknown indication
     Dosage: 1 MILLIGRAM, QD (1 MILLIGRAM SUBUTANEOUSLY ONCE ) (FORMULATION: SUBCUTANEOUS AUTO-INJECTOR
     Route: 058
  24. LEVOTHYROXINE [Concomitant]
     Active Substance: LEVOTHYROXINE
     Indication: Product used for unknown indication
     Dosage: 50 MICROGRAM, QD (50 MCG ORALLY DAILY)
     Route: 048
     Dates: start: 20240716
  25. LIDOCAINE [Concomitant]
     Active Substance: LIDOCAINE
     Indication: Back pain
     Dosage: 1 DOSAGE FORM, QD (1 PATCH TOPICALLY FOR BACK PAIN)
     Route: 061
     Dates: start: 20240116
  26. LITHIUM CARBONATE [Concomitant]
     Active Substance: LITHIUM CARBONATE
     Indication: Schizoaffective disorder
     Dosage: 300 MILLIGRAM, BID (300 MG ORALLY TWICE A DAY FOR SCHIZOAFFECTIVE)
     Route: 048
     Dates: start: 20240710
  27. LOSARTAN [Concomitant]
     Active Substance: LOSARTAN
     Indication: Blood pressure abnormal
     Dosage: 50 MILLIGRAM, QD (50 MG ORALLY DAILY FOR BLOOD PRESSURE)
     Route: 048
     Dates: start: 20240110
  28. VITAMINS [Concomitant]
     Active Substance: VITAMINS
     Indication: Supplementation therapy
     Dosage: 1 DOSAGE FORM, QD (1 TAB ORALLY DAILY FOR SUPPLEMENT)
     Route: 048
     Dates: start: 20240110
  29. NIACIN [Concomitant]
     Active Substance: NIACIN
     Indication: Product used for unknown indication
     Dosage: 1000 MILLIGRAM, QD (1000 MG ORALLY DAILY FOR)
     Route: 048
     Dates: start: 20240429
  30. OMEPRAZOLE [Concomitant]
     Active Substance: OMEPRAZOLE
     Indication: Product used for unknown indication
     Dosage: 20 MILLIGRAM, QD (20 MG ORALLY DAILY FOR)
     Route: 048
     Dates: start: 20240110
  31. PIOGLITAZONE [Concomitant]
     Active Substance: PIOGLITAZONE
     Indication: Product used for unknown indication
     Dosage: 30 MILLIGRAM, QD (30 MG ORALLY EVERY MORNING)
     Route: 048
     Dates: start: 20240910
  32. ZOLOFT [Concomitant]
     Active Substance: SERTRALINE HYDROCHLORIDE
     Indication: Product used for unknown indication
     Dosage: 200 MILLIGRAM, QD (200 MG ORALLY DAILY FOR)
     Route: 048
     Dates: start: 20240710
  33. JANUMET [Concomitant]
     Active Substance: METFORMIN HYDROCHLORIDE\SITAGLIPTIN PHOSPHATE
     Indication: Product used for unknown indication
     Dosage: 1 DOSAGE FORM, BID (1 TAB ORALLY TWICE A DAY)
     Route: 048
     Dates: start: 20240910
  34. TAMSULOSIN [Concomitant]
     Active Substance: TAMSULOSIN
     Indication: Product used for unknown indication
     Dosage: 0.4 MILLIGRAM, QD (0.4 MG ORALLY EVERY EVENING FOR)
     Route: 048
     Dates: start: 20240110
  35. TOPIRAMATE [Concomitant]
     Active Substance: TOPIRAMATE
     Indication: Affective disorder
     Dosage: 50 MILLIGRAM, BID (50 MG ORALLY TWICE A DAY FOR MOOD)
     Route: 048
     Dates: start: 20240710

REACTIONS (6)
  - Chest pain [Unknown]
  - Speech disorder [Unknown]
  - Dyskinesia [Unknown]
  - Toxicity to various agents [Recovered/Resolved]
  - Dysarthria [Unknown]
  - Dizziness [Unknown]

NARRATIVE: CASE EVENT DATE: 20240613
